FAERS Safety Report 4762419-9 (Version None)
Quarter: 2005Q3

REPORT INFORMATION
  Report Type: 
  Country: None (occurrence: None)
  Receive Date: 20050907
  Receipt Date: 20050829
  Transmission Date: 20060218
  Serious: Yes (Hospitalization)
  Sender: FDA-Public Use
  Company Number: 200512911FR

PATIENT
  Age: 85 Year
  Sex: Female

DRUGS (6)
  1. LOVENOX [Suspect]
     Indication: ERYSIPELAS
     Route: 058
     Dates: start: 20050725
  2. PRIMPERAN INJ [Suspect]
     Indication: NAUSEA
     Route: 048
     Dates: start: 20050727
  3. SMECTA [Suspect]
     Indication: NAUSEA
     Route: 048
     Dates: start: 20050727
  4. VIBRAMYCINE [Suspect]
     Indication: ERYSIPELAS
     Route: 048
     Dates: start: 20050725, end: 20050803
  5. CLAMOXYL [Suspect]
     Indication: ERYSIPELAS
     Route: 048
     Dates: start: 20050725, end: 20050803
  6. POLARAMINE [Concomitant]
     Indication: ERYSIPELAS
     Dates: start: 20050727

REACTIONS (8)
  - COGWHEEL RIGIDITY [None]
  - DIFFICULTY IN WALKING [None]
  - DYSKINESIA [None]
  - EYE DISORDER [None]
  - MOTOR DYSFUNCTION [None]
  - NAUSEA [None]
  - TREMOR [None]
  - VISUAL DISTURBANCE [None]
